FAERS Safety Report 4434768-5 (Version None)
Quarter: 2004Q3

REPORT INFORMATION
  Report Type: 
  Country: None (occurrence: None)
  Receive Date: 20040726
  Receipt Date: 20040517
  Transmission Date: 20050211
  Serious: No
  Sender: FDA-Public Use
  Company Number: USA030126822

PATIENT
  Age: 63 Year
  Sex: Female
  Weight: 58 kg

DRUGS (4)
  1. FORTEO [Suspect]
     Indication: OSTEOPOROSIS
     Dosage: 20 UG/1 DAY
  2. ARAVA [Concomitant]
  3. CELEBREX [Concomitant]
  4. TOPROL-XL [Concomitant]

REACTIONS (7)
  - BONE DENSITY DECREASED [None]
  - CYST [None]
  - INJECTION SITE HAEMORRHAGE [None]
  - NAUSEA [None]
  - PAIN IN EXTREMITY [None]
  - UNDERDOSE [None]
  - WEIGHT INCREASED [None]
